FAERS Safety Report 23125340 (Version 1)
Quarter: 2023Q4

REPORT INFORMATION
  Report Type: Spontaneous
  Country: US (occurrence: None)
  Receive Date: 20231030
  Receipt Date: 20231030
  Transmission Date: 20240109
  Serious: Yes (unspecified)
  Sender: FDA-Public Use
  Company Number: None

PATIENT
  Age: 68 Year
  Sex: Female
  Weight: 85.5 kg

DRUGS (5)
  1. MOXIFLOXACIN OPHTHALMIC [Suspect]
     Active Substance: MOXIFLOXACIN HYDROCHLORIDE
     Indication: Conjunctivitis
     Dosage: OTHER QUANTITY : 1 DROP(S);?FREQUENCY : 3 TIMES A DAY;?
     Route: 047
     Dates: start: 20231024, end: 20231025
  2. BYSTOLIC [Concomitant]
     Active Substance: NEBIVOLOL HYDROCHLORIDE
  3. amdolopine [Concomitant]
  4. CHLORTHALIDONE [Concomitant]
     Active Substance: CHLORTHALIDONE
  5. HERBALS\TURMERIC [Concomitant]
     Active Substance: HERBALS\TURMERIC

REACTIONS (2)
  - Eye swelling [None]
  - Eye pain [None]

NARRATIVE: CASE EVENT DATE: 20231024
